FAERS Safety Report 16297548 (Version 3)
Quarter: 2019Q3

REPORT INFORMATION
  Report Type: Report from Study
  Country: MY (occurrence: MY)
  Receive Date: 20190510
  Receipt Date: 20190906
  Transmission Date: 20191004
  Serious: Yes (Hospitalization, Other)
  Sender: FDA-Public Use
  Company Number: PHHY2019MY102394

PATIENT
  Age: 60 Year
  Sex: Male

DRUGS (3)
  1. PAZOPANIB [Suspect]
     Active Substance: PAZOPANIB
     Indication: RENAL CELL CARCINOMA
     Dosage: 400 MG, UNK
     Route: 048
     Dates: start: 2017
  2. PAZOPANIB [Suspect]
     Active Substance: PAZOPANIB
     Dosage: 200 MG, UNK
     Route: 048
     Dates: end: 20190207
  3. PAZOPANIB [Suspect]
     Active Substance: PAZOPANIB
     Dosage: 200 MG, UNK
     Route: 048
     Dates: start: 20190514

REACTIONS (9)
  - Respiratory tract infection fungal [Unknown]
  - Diabetes mellitus [Unknown]
  - Cough [Unknown]
  - Musculoskeletal chest pain [Unknown]
  - Liver function test increased [Unknown]
  - Renal disorder [Unknown]
  - Lung disorder [Unknown]
  - Pulmonary pain [Unknown]
  - Urine abnormality [Unknown]

NARRATIVE: CASE EVENT DATE: 20190207
